FAERS Safety Report 9921853 (Version 1)
Quarter: 2014Q1

REPORT INFORMATION
  Report Type: Spontaneous
  Country: US (occurrence: None)
  Receive Date: 20140221
  Receipt Date: 20140221
  Transmission Date: 20141002
  Serious: Yes (Other)
  Sender: FDA-Public Use
  Company Number: None

PATIENT
  Age: 29 Year
  Sex: Male
  Weight: 86.18 kg

DRUGS (3)
  1. VIIBRYD [Suspect]
     Indication: DEPRESSION
     Dosage: 1 PILL ONCE DAILY
     Route: 048
     Dates: start: 20130902, end: 20140220
  2. VIIBRYD [Suspect]
     Indication: OBSESSIVE-COMPULSIVE DISORDER
     Dosage: 1 PILL ONCE DAILY
     Route: 048
     Dates: start: 20130902, end: 20140220
  3. VIIBRYD [Suspect]
     Indication: ANXIETY
     Dosage: 1 PILL ONCE DAILY
     Route: 048
     Dates: start: 20130902, end: 20140220

REACTIONS (6)
  - Pruritus [None]
  - Drug dose omission [None]
  - Obsessive-compulsive disorder [None]
  - Disease recurrence [None]
  - Paraesthesia [None]
  - Incorrect dose administered [None]
